FAERS Safety Report 6426708-4 (Version None)
Quarter: 2009Q4

REPORT INFORMATION
  Report Type: 
  Country: None (occurrence: None)
  Receive Date: 20091104
  Receipt Date: 20091022
  Transmission Date: 20100525
  Serious: Yes (Other)
  Sender: FDA-Public Use
  Company Number: US-ELI_LILLY_AND_COMPANY-US200910006139

PATIENT
  Age: 55 Year
  Sex: Male

DRUGS (2)
  1. CIALIS [Suspect]
     Dosage: UNK, UNKNOWN
     Route: 065
     Dates: start: 20090901, end: 20091001
  2. RYTHMOL [Concomitant]
     Indication: ARRHYTHMIA
     Dosage: UNK, 3/D
     Route: 065

REACTIONS (1)
  - ATRIAL FIBRILLATION [None]
